FAERS Safety Report 9133462 (Version 1)
Quarter: 2013Q1

REPORT INFORMATION
  Report Type: Spontaneous
  Country: BR (occurrence: BR)
  Receive Date: 20130301
  Receipt Date: 20130301
  Transmission Date: 20140127
  Serious: Yes (Death)
  Sender: FDA-Public Use
  Company Number: BR-ASTRAZENECA-2013SE13068

PATIENT
  Age: 80 Year
  Sex: Female

DRUGS (8)
  1. NEXIUM [Suspect]
     Indication: EROSIVE OESOPHAGITIS
     Route: 048
     Dates: start: 2007
  2. SEROQUEL [Suspect]
     Indication: AGGRESSION
     Route: 048
     Dates: start: 2010
  3. SEROQUEL [Suspect]
     Indication: MEMORY IMPAIRMENT
     Route: 048
     Dates: start: 2010
  4. LANTUS [Concomitant]
     Indication: DIABETES MELLITUS
     Route: 058
  5. CHEMOTHERAPY [Concomitant]
     Indication: GRANULOMATOSIS WITH POLYANGIITIS
     Dosage: WEEKLY
     Route: 058
     Dates: start: 2006
  6. FOLICUM ACID [Concomitant]
     Indication: GRANULOMATOSIS WITH POLYANGIITIS
     Route: 048
     Dates: start: 2006
  7. PANTOPRAZOLE [Concomitant]
     Indication: EROSIVE OESOPHAGITIS
     Route: 048
     Dates: start: 2007
  8. MOTILIUM [Concomitant]
     Indication: EROSIVE OESOPHAGITIS
     Route: 048
     Dates: start: 2007

REACTIONS (4)
  - Myocardial infarction [Fatal]
  - Memory impairment [Unknown]
  - Aggression [Unknown]
  - Off label use [Not Recovered/Not Resolved]
